FAERS Safety Report 25012826 (Version 1)
Quarter: 2025Q1

REPORT INFORMATION
  Report Type: Spontaneous
  Country: BR (occurrence: BR)
  Receive Date: 20250226
  Receipt Date: 20250226
  Transmission Date: 20250409
  Serious: Yes (Hospitalization)
  Sender: UCB
  Company Number: BR-UCBSA-2025010328

PATIENT
  Sex: Male

DRUGS (2)
  1. VIMPAT [Suspect]
     Active Substance: LACOSAMIDE
     Indication: Seizure
     Dosage: 100 MILLIGRAM, 2X/DAY (BID)
     Dates: start: 20241227
  2. VALPROATE SODIUM [Concomitant]
     Active Substance: VALPROATE SODIUM

REACTIONS (3)
  - Hospitalisation [Recovered/Resolved]
  - Product use issue [Unknown]
  - Product availability issue [Unknown]
